FAERS Safety Report 5546441-0 (Version None)
Quarter: 2007Q4

REPORT INFORMATION
  Report Type: 
  Country: None (occurrence: None)
  Receive Date: 20071211
  Receipt Date: 20071130
  Transmission Date: 20080405
  Serious: Yes (Hospitalization, Other)
  Sender: FDA-Public Use
  Company Number: HQWYE586229JUL04

PATIENT
  Sex: Female

DRUGS (7)
  1. PREMPRO [Suspect]
  2. PROVERA [Suspect]
  3. CYCRIN [Suspect]
  4. PREMPHASE 14/14 [Suspect]
  5. ESTROGENS [Suspect]
  6. PREMARIN [Suspect]
  7. MEDROXYPROGESTERONE ACETATE [Suspect]

REACTIONS (1)
  - BREAST CANCER METASTATIC [None]
